FAERS Safety Report 17354417 (Version 2)
Quarter: 2020Q3

REPORT INFORMATION
  Report Type: Report from Study
  Country: None (occurrence: AU)
  Receive Date: 20200131
  Receipt Date: 20200811
  Transmission Date: 20201102
  Serious: Yes (Other)
  Sender: FDA-Public Use
  Company Number: AU-ABBVIE-20K-008-3257714-00

PATIENT
  Sex: Male

DRUGS (1)
  1. IMBRUVICA [Suspect]
     Active Substance: IBRUTINIB
     Indication: CHRONIC LYMPHOCYTIC LEUKAEMIA
     Route: 048
     Dates: start: 20151201

REACTIONS (10)
  - Anxiety [Unknown]
  - Retinal detachment [Unknown]
  - Bronchitis [Recovered/Resolved]
  - Atrial fibrillation [Unknown]
  - Glaucoma [Unknown]
  - Cystitis [Unknown]
  - Viral infection [Unknown]
  - Weight increased [Unknown]
  - Impaired healing [Unknown]
  - Cataract [Unknown]
